FAERS Safety Report 10437709 (Version 1)
Quarter: 2014Q3

REPORT INFORMATION
  Report Type: Spontaneous
  Country: US (occurrence: US)
  Receive Date: 20140908
  Receipt Date: 20140908
  Transmission Date: 20150326
  Serious: No
  Sender: FDA-Public Use
  Company Number: US-BRISTOL-MYERS SQUIBB COMPANY-19734821

PATIENT
  Age: 27 Year
  Sex: Female

DRUGS (1)
  1. ABILIFY [Suspect]
     Active Substance: ARIPIPRAZOLE
     Dosage: JUL13-20MG?REDUCED TO 15MG AND THEN 10MG
     Dates: start: 201304, end: 201310

REACTIONS (1)
  - Drug ineffective [Unknown]
